FAERS Safety Report 21537088 (Version 1)
Quarter: 2022Q4

REPORT INFORMATION
  Report Type: Spontaneous
  Country: US (occurrence: None)
  Receive Date: 20221101
  Receipt Date: 20221101
  Transmission Date: 20230113
  Serious: Yes (Disabling, Other)
  Sender: FDA-Public Use
  Company Number: None

PATIENT
  Age: 62 Year
  Sex: Female
  Weight: 69.75 kg

DRUGS (3)
  1. LEVOFLOXACIN [Suspect]
     Active Substance: LEVOFLOXACIN
     Indication: Sinusitis
     Dosage: OTHER QUANTITY : 10 TABLET(S);?FREQUENCY : DAILY;?
     Route: 048
     Dates: start: 20220511, end: 20220515
  2. Many vitamins [Concomitant]
  3. UNSPECIFIED INGREDIENT [Concomitant]
     Active Substance: UNSPECIFIED INGREDIENT

REACTIONS (13)
  - Limb discomfort [None]
  - Arthralgia [None]
  - Fatigue [None]
  - Respiratory rate decreased [None]
  - Oxygen saturation decreased [None]
  - Sinus disorder [None]
  - Tendonitis [None]
  - Tendon rupture [None]
  - Periarthritis [None]
  - Tinnitus [None]
  - Sleep disorder [None]
  - Mood altered [None]
  - Suicidal ideation [None]

NARRATIVE: CASE EVENT DATE: 20220512
